FAERS Safety Report 7733480-4 (Version None)
Quarter: 2011Q3

REPORT INFORMATION
  Report Type: 
  Country: None (occurrence: None)
  Receive Date: 20110902
  Receipt Date: 20110902
  Transmission Date: 20111222
  Serious: Yes (Life-Threatening)
  Sender: FDA-Public Use
  Company Number: None

PATIENT
  Sex: Female

DRUGS (2)
  1. COZAAR [Suspect]
     Dates: start: 20110727
  2. LOSARTAN POTASSIUM [Suspect]
     Indication: CARDIAC DISORDER
     Dosage: ONE PILL
     Dates: start: 20110726

REACTIONS (6)
  - SINUS ARREST [None]
  - DIZZINESS [None]
  - HEART RATE INCREASED [None]
  - HYPERHIDROSIS [None]
  - NAUSEA [None]
  - PARAESTHESIA [None]
